FAERS Safety Report 10598279 (Version 2)
Quarter: 2015Q2

REPORT INFORMATION
  Report Type: Report from Study
  Country: TR (occurrence: TR)
  Receive Date: 20141121
  Receipt Date: 20150527
  Transmission Date: 20150821
  Serious: Yes (Hospitalization)
  Sender: FDA-Public Use
  Company Number: TR-NOVOPROD-429228

PATIENT
  Age: 3 Day
  Sex: Male
  Weight: 3.8 kg

DRUGS (1)
  1. INSULATARD NPH HUMAN [Suspect]
     Active Substance: INSULIN HUMAN
     Indication: TYPE 2 DIABETES MELLITUS
     Dosage: 40 U, QD
     Route: 064
     Dates: start: 20140213, end: 20140929

REACTIONS (3)
  - Neonatal infection [Recovered/Resolved]
  - Jaundice neonatal [Recovered/Resolved]
  - Foetal exposure during pregnancy [Recovered/Resolved]

NARRATIVE: CASE EVENT DATE: 20140213
